FAERS Safety Report 9607880 (Version 1)
Quarter: 2013Q4

REPORT INFORMATION
  Report Type: Spontaneous
  Country: US (occurrence: None)
  Receive Date: 20131008
  Receipt Date: 20131008
  Transmission Date: 20140711
  Serious: Yes (Hospitalization)
  Sender: FDA-Public Use
  Company Number: None

PATIENT
  Age: 22 Year
  Sex: Male
  Weight: 77.11 kg

DRUGS (2)
  1. METOCLOPRAMIDE REGLAN [Suspect]
     Indication: DIARRHOEA
     Dosage: 1 PILL FOUR TIMES DAILY TAKEN BY MOUTH
     Route: 048
  2. METOCLOPRAMIDE REGLAN [Suspect]
     Indication: NAUSEA
     Dosage: 1 PILL FOUR TIMES DAILY TAKEN BY MOUTH
     Route: 048

REACTIONS (1)
  - Dystonia [None]
